FAERS Safety Report 23592676 (Version 2)
Quarter: 2024Q1

REPORT INFORMATION
  Report Type: Report from Study
  Country: EG (occurrence: EG)
  Receive Date: 20240304
  Receipt Date: 20240307
  Transmission Date: 20240410
  Serious: No
  Sender: FDA-Public Use
  Company Number: EG-SANDOZ-SDZ2024EG017855

PATIENT
  Age: 5 Year
  Sex: Male
  Weight: 18 kg

DRUGS (4)
  1. OMNITROPE [Suspect]
     Active Substance: SOMATROPIN
     Indication: Growth hormone deficiency
     Dosage: FROM 06 MG/DAY TO 0.7 MG/DAY FOR NORMAL GROWTH
     Route: 058
     Dates: start: 20220525
  2. OMNITROPE [Suspect]
     Active Substance: SOMATROPIN
     Dosage: UNK (1MG/2 DAYS)
     Route: 065
     Dates: start: 20231104, end: 20231204
  3. DEVAROL [Concomitant]
     Indication: Back pain
     Dosage: UNK (1 AMPOULE/ 4 MONTHS)
     Route: 030
     Dates: start: 20230304
  4. DEVAROL [Concomitant]
     Indication: Pain in extremity

REACTIONS (7)
  - Device defective [Not Recovered/Not Resolved]
  - Incorrect dose administered [Not Recovered/Not Resolved]
  - Product availability issue [Recovered/Resolved]
  - Off label use [Not Recovered/Not Resolved]
  - Wrong technique in product usage process [Not Recovered/Not Resolved]
  - Device breakage [Unknown]
  - Product substitution issue [Unknown]

NARRATIVE: CASE EVENT DATE: 20220525
